FAERS Safety Report 9671425 (Version 1)
Quarter: 2013Q4

REPORT INFORMATION
  Report Type: Spontaneous
  Country: US (occurrence: US)
  Receive Date: 20131106
  Receipt Date: 20131106
  Transmission Date: 20140711
  Serious: Yes (Hospitalization)
  Sender: FDA-Public Use
  Company Number: US-ABBVIE-13P-163-1165755-00

PATIENT
  Age: 9 Year
  Sex: Female
  Weight: 26.79 kg

DRUGS (7)
  1. DEPAKOTE SPRINKLE [Suspect]
     Indication: CONVULSION
     Dosage: 375MG QAM AND 500MG QPM
     Route: 048
     Dates: start: 2008, end: 201308
  2. DEPAKENE [Suspect]
     Indication: PRODUCT USED FOR UNKNOWN INDICATION
     Dates: end: 2008
  3. ZONEGRAN [Concomitant]
     Indication: PRODUCT USED FOR UNKNOWN INDICATION
  4. PREVACID [Concomitant]
     Indication: PRODUCT USED FOR UNKNOWN INDICATION
  5. BUPHENYL [Concomitant]
     Indication: PRODUCT USED FOR UNKNOWN INDICATION
     Dates: start: 201308
  6. LAMICTAL [Concomitant]
     Indication: PRODUCT USED FOR UNKNOWN INDICATION
  7. RISPERDAL [Concomitant]
     Indication: PRODUCT USED FOR UNKNOWN INDICATION

REACTIONS (9)
  - Laboratory test abnormal [Recovered/Resolved]
  - Ammonia increased [Recovered/Resolved]
  - Laboratory test abnormal [Recovered/Resolved]
  - Ornithine transcarbamoylase deficiency [Not Recovered/Not Resolved]
  - Aggression [Recovered/Resolved]
  - Agitation [Recovered/Resolved]
  - Akathisia [Recovered/Resolved]
  - Decreased appetite [Not Recovered/Not Resolved]
  - Weight decreased [Not Recovered/Not Resolved]
